APPROVED DRUG PRODUCT: SANDOSTATIN
Active Ingredient: OCTREOTIDE ACETATE
Strength: EQ 1MG BASE/ML **Federal Register determination that product was not discontinued or withdrawn for safety or effectiveness reasons**
Dosage Form/Route: INJECTABLE;INJECTION
Application: N019667 | Product #005
Applicant: NOVARTIS PHARMACEUTICALS CORP
Approved: Jun 12, 1991 | RLD: Yes | RS: No | Type: DISCN